FAERS Safety Report 6286875-2 (Version None)
Quarter: 2009Q3

REPORT INFORMATION
  Report Type: 
  Country: None (occurrence: None)
  Receive Date: 20090727
  Receipt Date: 20090727
  Transmission Date: 20100115
  Serious: Yes (Disabling)
  Sender: FDA-Public Use
  Company Number: None

PATIENT
  Sex: Female

DRUGS (1)
  1. ZICAM ALLERGY RELIEF GEL SWABS ZICAM [Suspect]
     Indication: HYPERSENSITIVITY
     Dates: start: 20090501, end: 20090601

REACTIONS (2)
  - AGEUSIA [None]
  - ANOSMIA [None]
